FAERS Safety Report 9321720 (Version 1)
Quarter: 2013Q2

REPORT INFORMATION
  Report Type: Spontaneous
  Country: US (occurrence: None)
  Receive Date: 20130528
  Receipt Date: 20130528
  Transmission Date: 20140414
  Serious: Yes (Disabling)
  Sender: FDA-Public Use
  Company Number: 2012AP004406

PATIENT
  Age: 34 Year
  Sex: Male
  Weight: 91.4 kg

DRUGS (5)
  1. FERRIPROX [Suspect]
     Indication: THALASSAEMIA BETA
     Route: 048
     Dates: start: 20121125, end: 20121206
  2. FERRIPROX [Suspect]
     Indication: IRON OVERLOAD
     Route: 048
     Dates: start: 20121125, end: 20121206
  3. LISINOPRIL [Concomitant]
  4. EXJADE [Concomitant]
  5. DEFEROXAMINE [Concomitant]

REACTIONS (5)
  - Fatigue [None]
  - Hypersomnia [None]
  - White blood cell count increased [None]
  - Haemoglobin decreased [None]
  - Haematocrit decreased [None]
